FAERS Safety Report 6071810-2 (Version None)
Quarter: 2009Q1

REPORT INFORMATION
  Report Type: 
  Country: None (occurrence: None)
  Receive Date: 20090210
  Receipt Date: 20090130
  Transmission Date: 20090719
  Serious: Yes (Other)
  Sender: FDA-Public Use
  Company Number: PHHY2009DE00732

PATIENT
  Sex: Female

DRUGS (4)
  1. TRILEPTAL [Suspect]
     Indication: EPILEPSY
     Dosage: 900 MG, QD
     Route: 048
     Dates: start: 20081001
  2. TRILEPTAL [Suspect]
     Indication: PARTIAL SEIZURES
  3. VALPROIC ACID [Concomitant]
     Indication: EPILEPSY
     Dosage: 100 MG, QD
     Route: 048
     Dates: start: 20070101, end: 20081214
  4. TIAGABINE HCL [Concomitant]
     Indication: EPILEPSY
     Dosage: 15 MG, QD
     Route: 048
     Dates: start: 20081214

REACTIONS (2)
  - HYPONATRAEMIA [None]
  - OBSESSIVE-COMPULSIVE DISORDER [None]
